FAERS Safety Report 19472538 (Version 1)
Quarter: 2021Q2

REPORT INFORMATION
  Report Type: Spontaneous
  Country: FR (occurrence: FR)
  Receive Date: 20210629
  Receipt Date: 20210629
  Transmission Date: 20210717
  Serious: Yes (Death, Other)
  Sender: FDA-Public Use
  Company Number: FR-MYLANLABS-2021M1037118

PATIENT
  Age: 55 Year
  Sex: Female

DRUGS (6)
  1. FLUDARABINE PHOSPHATE. [Suspect]
     Active Substance: FLUDARABINE PHOSPHATE
     Indication: BONE MARROW CONDITIONING REGIMEN
     Dosage: 30 MILLIGRAM/SQ. METER, QD (30 MG/M2, QD FROM DAY ?4 TO DAY ?1)
  2. THYMOGLOBULIN [Suspect]
     Active Substance: LAPINE T-LYMPHOCYTE IMMUNE GLOBULIN
     Indication: BONE MARROW CONDITIONING REGIMEN
     Dosage: 0.5 MILLIGRAM/KILOGRAM (0.5 MG/KG ON DAY ?5)
  3. CLOFARABINE. [Suspect]
     Active Substance: CLOFARABINE
     Indication: BONE MARROW CONDITIONING REGIMEN
     Dosage: 30 MILLIGRAM/SQ. METER, QD (30 MG/M2, QD; FROM DAY?13 TO DAY?10)
  4. CYTARABINE. [Suspect]
     Active Substance: CYTARABINE
     Indication: BONE MARROW CONDITIONING REGIMEN
     Dosage: 1000 MILLIGRAM/SQ. METER, QD (1000 MG/M2, BID; FROM DAY?13 TO DAY?10)
  5. BUSULFAN. [Suspect]
     Active Substance: BUSULFAN
     Indication: BONE MARROW CONDITIONING REGIMEN
     Dosage: 0.8 MILLIGRAM/KILOGRAM, QD  (0.8 MG/KG, QD; FROM DAY?5 TO DAY?3)
     Route: 042
  6. THYMOGLOBULIN [Suspect]
     Active Substance: LAPINE T-LYMPHOCYTE IMMUNE GLOBULIN
     Dosage: 1 MILLIGRAM/KILOGRAM (1 MG/KG ON DAY ?4 AND DAY ?3)

REACTIONS (4)
  - Drug abuse [Unknown]
  - Toxoplasmosis [Fatal]
  - Toxicity to various agents [Fatal]
  - Overdose [Unknown]
